FAERS Safety Report 19991059 (Version 1)
Quarter: 2021Q4

REPORT INFORMATION
  Report Type: Spontaneous
  Country: US (occurrence: US)
  Receive Date: 20211025
  Receipt Date: 20211025
  Transmission Date: 20220303
  Serious: No
  Sender: FDA-Public Use
  Company Number: US-BAUSCH-BL-2021-034800

PATIENT
  Sex: Female

DRUGS (2)
  1. PENICILLAMINE [Suspect]
     Active Substance: PENICILLAMINE
     Indication: Hepato-lenticular degeneration
     Route: 065
  2. ZINC [Suspect]
     Active Substance: ZINC
     Indication: Hepato-lenticular degeneration
     Route: 065

REACTIONS (3)
  - Skin burning sensation [Unknown]
  - General physical health deterioration [Unknown]
  - Symptom recurrence [Unknown]
